FAERS Safety Report 12297747 (Version 2)
Quarter: 2016Q2

REPORT INFORMATION
  Report Type: Spontaneous
  Country: US (occurrence: US)
  Receive Date: 20160422
  Receipt Date: 20160623
  Transmission Date: 20160815
  Serious: Yes (Other)
  Sender: FDA-Public Use
  Company Number: US-FRI-1000084069

PATIENT
  Age: 36 Year
  Sex: Female

DRUGS (7)
  1. CLONIDINE. [Concomitant]
     Active Substance: CLONIDINE
     Indication: SLEEP TERROR
     Route: 048
  2. SAVELLA [Suspect]
     Active Substance: MILNACIPRAN HYDROCHLORIDE
     Dosage: 100 MG
     Route: 048
     Dates: start: 20160115
  3. XANAX [Concomitant]
     Active Substance: ALPRAZOLAM
     Indication: PANIC ATTACK
     Route: 048
  4. LEVOTHYROXINE. [Concomitant]
     Active Substance: LEVOTHYROXINE
     Indication: AUTOIMMUNE THYROIDITIS
     Route: 048
  5. VICODIN [Concomitant]
     Active Substance: ACETAMINOPHEN\HYDROCODONE BITARTRATE
     Indication: BREAKTHROUGH PAIN
     Route: 048
  6. SAVELLA [Suspect]
     Active Substance: MILNACIPRAN HYDROCHLORIDE
     Indication: FIBROMYALGIA
     Dosage: 100 MG
     Route: 048
     Dates: start: 201501, end: 201504
  7. SAVELLA [Suspect]
     Active Substance: MILNACIPRAN HYDROCHLORIDE
     Indication: PREMENSTRUAL DYSPHORIC DISORDER
     Dosage: 200 MG
     Route: 048
     Dates: start: 201504, end: 20160414

REACTIONS (16)
  - Disturbance in attention [Recovering/Resolving]
  - Hyperemesis gravidarum [Recovering/Resolving]
  - Hypotension [Recovering/Resolving]
  - Confusional state [Recovering/Resolving]
  - Amnesia [Recovering/Resolving]
  - Nausea [Recovering/Resolving]
  - Speech disorder [Recovering/Resolving]
  - Dysphemia [Recovering/Resolving]
  - Vomiting [Recovering/Resolving]
  - Palpitations [Recovering/Resolving]
  - Blood pressure fluctuation [Recovering/Resolving]
  - Pyrexia [Not Recovered/Not Resolved]
  - Cervix cerclage procedure [Not Recovered/Not Resolved]
  - Pregnancy [Not Recovered/Not Resolved]
  - Heart rate increased [Recovering/Resolving]
  - Off label use [Not Recovered/Not Resolved]

NARRATIVE: CASE EVENT DATE: 201504
